FAERS Safety Report 6346310-2 (Version None)
Quarter: 2009Q3

REPORT INFORMATION
  Report Type: 
  Country: None (occurrence: None)
  Receive Date: 20090909
  Receipt Date: 20090827
  Transmission Date: 20100115
  Serious: Yes (Other)
  Sender: FDA-Public Use
  Company Number: AU-PFIZER INC-2009263488

PATIENT
  Age: 68 Year

DRUGS (3)
  1. ATORVASTATIN CALCIUM [Suspect]
  2. CANDESARTAN [Concomitant]
  3. VENLAFAXINE [Concomitant]

REACTIONS (1)
  - DRUG ERUPTION [None]
